FAERS Safety Report 11360200 (Version 6)
Quarter: 2016Q1

REPORT INFORMATION
  Report Type: Spontaneous
  Country: US (occurrence: US)
  Receive Date: 20150810
  Receipt Date: 20160126
  Transmission Date: 20160525
  Serious: Yes (Hospitalization, Other)
  Sender: FDA-Public Use
  Company Number: PHEH2015US014535

PATIENT
  Sex: Female
  Weight: 59 kg

DRUGS (9)
  1. TRILEPTAL [Suspect]
     Active Substance: OXCARBAZEPINE
     Indication: SEIZURE
     Dosage: DOSE INCREASED
     Route: 065
  2. VIMPAT [Suspect]
     Active Substance: LACOSAMIDE
     Indication: SEIZURE
     Dosage: UNK
     Route: 065
  3. NEURONTIN [Suspect]
     Active Substance: GABAPENTIN
     Indication: SEIZURE
     Route: 065
  4. LAMICTAL [Suspect]
     Active Substance: LAMOTRIGINE
     Indication: SEIZURE
     Dosage: 800 MG, BID
     Route: 048
     Dates: start: 2010
  5. LAMICTAL [Suspect]
     Active Substance: LAMOTRIGINE
     Dosage: 1200 MG, UNK
     Route: 048
     Dates: end: 2011
  6. ZONISAMIDE. [Suspect]
     Active Substance: ZONISAMIDE
     Indication: SEIZURE
     Dosage: UNK
     Route: 065
  7. SEROQUEL [Suspect]
     Active Substance: QUETIAPINE FUMARATE
     Indication: DEPRESSION
     Dosage: UNK
     Route: 065
  8. DEPAKOTE [Suspect]
     Active Substance: DIVALPROEX SODIUM
     Indication: SEIZURE
     Dosage: LOW DOSE
     Route: 065
  9. THORAZINE [Concomitant]
     Active Substance: CHLORPROMAZINE
     Indication: PRODUCT USED FOR UNKNOWN INDICATION
     Dosage: UNK
     Route: 065

REACTIONS (49)
  - Insomnia [Recovered/Resolved]
  - Irritability [Recovered/Resolved]
  - Muscular weakness [Recovered/Resolved]
  - Depression [Recovered/Resolved]
  - Agitation [Recovered/Resolved]
  - Constipation [Recovered/Resolved]
  - Malaise [Recovered/Resolved]
  - Dizziness [Recovered/Resolved]
  - Tremor [Recovered/Resolved]
  - Myocardial infarction [Recovered/Resolved]
  - Mania [Recovered/Resolved]
  - Pallor [Recovered/Resolved]
  - Disturbance in attention [Recovered/Resolved]
  - Hyperhidrosis [Recovered/Resolved]
  - Joint instability [Recovered/Resolved]
  - Formication [Recovered/Resolved]
  - Strabismus [Recovered/Resolved]
  - Bladder pain [Recovered/Resolved]
  - Alopecia [Recovered/Resolved]
  - Head injury [Recovered/Resolved]
  - Depressed mood [Recovered/Resolved]
  - Asthenia [Recovered/Resolved]
  - Affect lability [Recovered/Resolved]
  - Seizure [Recovered/Resolved]
  - Drug ineffective [Recovered/Resolved]
  - Balance disorder [Recovered/Resolved]
  - Oliguria [Recovered/Resolved]
  - Pollakiuria [Recovered/Resolved]
  - Coordination abnormal [Recovered/Resolved]
  - Fatigue [Recovered/Resolved]
  - Costochondritis [Recovered/Resolved]
  - Dry mouth [Recovered/Resolved]
  - Vomiting [Recovered/Resolved]
  - Nausea [Recovered/Resolved]
  - Abdominal discomfort [Recovered/Resolved]
  - Contusion [Recovered/Resolved]
  - Diplopia [Recovered/Resolved]
  - Fall [Recovered/Resolved]
  - Confusional state [Recovered/Resolved]
  - Cognitive disorder [Recovered/Resolved]
  - Haemorrhage [Recovered/Resolved]
  - Loss of consciousness [Recovered/Resolved]
  - Urine abnormality [Recovered/Resolved]
  - Injury [Recovered/Resolved]
  - Gastritis [Recovered/Resolved]
  - Weight increased [Recovered/Resolved]
  - Psychotic disorder [Recovered/Resolved]
  - Amnesia [Recovered/Resolved]
  - Logorrhoea [Recovered/Resolved]

NARRATIVE: CASE EVENT DATE: 2010
